FAERS Safety Report 7051251-1 (Version None)
Quarter: 2010Q4

REPORT INFORMATION
  Report Type: 
  Country: None (occurrence: None)
  Receive Date: 20101019
  Receipt Date: 20101006
  Transmission Date: 20110411
  Serious: Yes (Other)
  Sender: FDA-Public Use
  Company Number: PHFR2010GB01517

PATIENT
  Sex: Male

DRUGS (1)
  1. CLOZAPINE [Suspect]
     Indication: SCHIZOPHRENIA
     Dosage: UNK
     Route: 048
     Dates: start: 20060620

REACTIONS (4)
  - GASTROINTESTINAL CARCINOMA [None]
  - GASTROINTESTINAL SURGERY [None]
  - MALAISE [None]
  - OFF LABEL USE [None]
